FAERS Safety Report 22332779 (Version 1)
Quarter: 2023Q2

REPORT INFORMATION
  Report Type: Spontaneous
  Country: US (occurrence: US)
  Receive Date: 20230517
  Receipt Date: 20230517
  Transmission Date: 20230721
  Serious: No
  Sender: FDA-Public Use
  Company Number: US-TEVA-2023-US-2886933

PATIENT
  Age: 42 Year
  Sex: Female

DRUGS (1)
  1. QNASL [Suspect]
     Active Substance: BECLOMETHASONE DIPROPIONATE
     Indication: Hypersensitivity
     Dosage: 80MCG, 2 SPRAYS, ONCE PER DAY
     Route: 065
     Dates: start: 20160101, end: 20230430

REACTIONS (2)
  - Hypersensitivity [Unknown]
  - Device delivery system issue [Unknown]
